FAERS Safety Report 24526937 (Version 1)
Quarter: 2024Q4

REPORT INFORMATION
  Report Type: Spontaneous
  Country: US (occurrence: US)
  Receive Date: 20241021
  Receipt Date: 20241021
  Transmission Date: 20250114
  Serious: No
  Sender: THE RITEDOSE CORP
  Company Number: US-THE RITEDOSE CORPORATION-2024RIT000076

PATIENT

DRUGS (2)
  1. IPRATROPIUM BROMIDE AND ALBUTEROL SULFATE [Suspect]
     Active Substance: ALBUTEROL SULFATE\IPRATROPIUM BROMIDE
     Indication: Pulmonary fibrosis
     Dosage: UNK
     Route: 055
     Dates: start: 20240526, end: 20240529
  2. IPRATROPIUM BROMIDE AND ALBUTEROL SULFATE [Suspect]
     Active Substance: ALBUTEROL SULFATE\IPRATROPIUM BROMIDE
     Dosage: UNK
     Route: 055
     Dates: start: 20240602, end: 20240602

REACTIONS (2)
  - Cough [Unknown]
  - Product quality issue [Unknown]

NARRATIVE: CASE EVENT DATE: 20240101
